FAERS Safety Report 9643534 (Version 2)
Quarter: 2013Q4

REPORT INFORMATION
  Report Type: Spontaneous
  Country: SK (occurrence: SK)
  Receive Date: 20131024
  Receipt Date: 20131024
  Transmission Date: 20140711
  Serious: Yes (Hospitalization)
  Sender: FDA-Public Use
  Company Number: SK-SA-POMP-1003082

PATIENT
  Age: 29 Year
  Sex: Female
  Weight: 46.6 kg

DRUGS (2)
  1. ALGLUCOSIDASE ALFA [Suspect]
     Indication: GLYCOGEN STORAGE DISEASE TYPE II
     Dosage: 20 UNK, UNK
     Route: 042
     Dates: start: 20100219
  2. LYRICA [Concomitant]
     Indication: NEUROGENIC BLADDER
     Dates: start: 201302

REACTIONS (3)
  - Restrictive pulmonary disease [Not Recovered/Not Resolved]
  - Dyspnoea [Not Recovered/Not Resolved]
  - Lung hyperinflation [Not Recovered/Not Resolved]
